FAERS Safety Report 16053588 (Version 3)
Quarter: 2019Q2

REPORT INFORMATION
  Report Type: Report from Study
  Country: US (occurrence: US)
  Receive Date: 20190308
  Receipt Date: 20190412
  Transmission Date: 20190711
  Serious: Yes (Hospitalization, Other)
  Sender: FDA-Public Use
  Company Number: US-GILEAD-2019-0395584

PATIENT
  Age: 70 Year
  Sex: Female
  Weight: 58.96 kg

DRUGS (5)
  1. UPTRAVI [Concomitant]
     Active Substance: SELEXIPAG
  2. REVATIO [Concomitant]
     Active Substance: SILDENAFIL CITRATE
  3. AMBRISENTAN [Suspect]
     Active Substance: AMBRISENTAN
     Indication: CARDIAC FAILURE CONGESTIVE
  4. AMBRISENTAN [Suspect]
     Active Substance: AMBRISENTAN
     Indication: PULMONARY HYPERTENSION
     Dosage: 10 MG, QD
     Route: 065
     Dates: start: 20170105
  5. ELIQUIS [Concomitant]
     Active Substance: APIXABAN

REACTIONS (7)
  - Haemorrhage [Unknown]
  - Anaemia [Unknown]
  - Weight increased [Unknown]
  - Syncope [Unknown]
  - Swelling [Not Recovered/Not Resolved]
  - Rectal haemorrhage [Unknown]
  - Haemorrhoids [Unknown]
